FAERS Safety Report 6211601-2 (Version None)
Quarter: 2009Q2

REPORT INFORMATION
  Report Type: 
  Country: None (occurrence: None)
  Receive Date: 20090602
  Receipt Date: 20090420
  Transmission Date: 20091009
  Serious: Yes (Death)
  Sender: FDA-Public Use
  Company Number: JP-ASTRAZENECA-2009AP02543

PATIENT
  Age: 72 Year
  Sex: Male
  Weight: 61 kg

DRUGS (10)
  1. IRESSA [Suspect]
     Indication: LUNG ADENOCARCINOMA
     Route: 048
     Dates: start: 20081031, end: 20081225
  2. ALFAROL [Concomitant]
     Route: 048
     Dates: start: 20081001, end: 20081225
  3. PERSANTINE [Concomitant]
     Route: 048
     Dates: start: 20081001, end: 20081225
  4. SELBEX [Concomitant]
     Route: 048
     Dates: start: 20081001, end: 20081225
  5. LIVALO [Concomitant]
     Route: 048
     Dates: start: 20081001, end: 20081225
  6. ZANTAC [Concomitant]
     Route: 048
     Dates: start: 20081001, end: 20081225
  7. AMARYL [Concomitant]
     Route: 048
     Dates: start: 20081001, end: 20081225
  8. MIYA BM [Concomitant]
     Route: 048
     Dates: start: 20081001, end: 20081225
  9. SOLANAX [Concomitant]
     Route: 048
     Dates: start: 20081001, end: 20081225
  10. ZOMETA [Concomitant]
     Indication: METASTASES TO BONE
     Route: 042
     Dates: start: 20081001, end: 20081225

REACTIONS (1)
  - LUNG DISORDER [None]
